FAERS Safety Report 7611936-2 (Version None)
Quarter: 2011Q3

REPORT INFORMATION
  Report Type: 
  Country: None (occurrence: None)
  Receive Date: 20110715
  Receipt Date: 20110711
  Transmission Date: 20111222
  Serious: Yes (Hospitalization, Other)
  Sender: FDA-Public Use
  Company Number: US-SANOFI-AVENTIS-A03200701697

PATIENT
  Age: 64 Year
  Sex: Male
  Weight: 98.88 kg

DRUGS (18)
  1. CELEXA [Concomitant]
  2. COLACE [Concomitant]
     Dates: end: 20040928
  3. ATENOLOL [Concomitant]
  4. CATAPRES /UNK/ [Concomitant]
  5. CLOPIDOGREL BISULFATE [Suspect]
     Dosage: UNIT DOSE: 75 MG
     Route: 048
     Dates: start: 20040904, end: 20050222
  6. HYDROCHLOROTHIAZIDE [Concomitant]
  7. LANOXIN [Concomitant]
  8. AMIODARONE HCL [Concomitant]
  9. MULTI-VITAMINS [Concomitant]
  10. CLOPIDOGREL BISULFATE [Suspect]
     Indication: CORONARY ARTERY BYPASS
     Dosage: UNIT DOSE: 75 MG
     Route: 048
     Dates: start: 20040904, end: 20050222
  11. ASPIRIN [Suspect]
     Route: 048
     Dates: start: 20040901, end: 20050222
  12. FLONASE [Concomitant]
  13. CLOPIDOGREL BISULFATE [Suspect]
     Indication: CORONARY ARTERY DISEASE
     Dosage: UNIT DOSE: 75 MG
     Route: 048
     Dates: start: 20040904, end: 20050222
  14. NITROGLYCERIN [Concomitant]
     Dates: end: 20040928
  15. PREVACID [Concomitant]
  16. LORTAB [Concomitant]
  17. POTASSIUM CHLORIDE [Concomitant]
     Route: 048
  18. ZOCOR [Concomitant]

REACTIONS (7)
  - CEREBRAL HAEMORRHAGE [None]
  - DIZZINESS [None]
  - BLOOD PRESSURE INCREASED [None]
  - CONDITION AGGRAVATED [None]
  - ATRIAL FIBRILLATION [None]
  - VERTIGO [None]
  - NAUSEA [None]
